FAERS Safety Report 7307879-4 (Version None)
Quarter: 2011Q1

REPORT INFORMATION
  Report Type: 
  Country: None (occurrence: None)
  Receive Date: 20110210
  Receipt Date: 20110120
  Transmission Date: 20110831
  Serious: Yes (Death)
  Sender: FDA-Public Use
  Company Number: AE11-016-12

PATIENT
  Sex: Female

DRUGS (2)
  1. ETHANOL [Suspect]
  2. LORCET-HD [Suspect]

REACTIONS (4)
  - RESPIRATORY ARREST [None]
  - MULTIPLE DRUG OVERDOSE INTENTIONAL [None]
  - COMPLETED SUICIDE [None]
  - CARDIAC ARREST [None]
